FAERS Safety Report 9879023 (Version 1)
Quarter: 2014Q1

REPORT INFORMATION
  Report Type: Spontaneous
  Country: US (occurrence: US)
  Receive Date: 20140206
  Receipt Date: 20140206
  Transmission Date: 20141002
  Serious: Yes (Other)
  Sender: FDA-Public Use
  Company Number: US-PFIZER INC-2014033346

PATIENT
  Sex: Female

DRUGS (1)
  1. LYRICA [Suspect]
     Dosage: UNK

REACTIONS (5)
  - Abasia [Unknown]
  - Nerve compression [Unknown]
  - Diabetic neuropathy [Unknown]
  - Hypoaesthesia [Unknown]
  - Insomnia [Unknown]
